FAERS Safety Report 14190521 (Version 2)
Quarter: 2017Q4

REPORT INFORMATION
  Report Type: Report from Study
  Country: None (occurrence: CA)
  Receive Date: 20171115
  Receipt Date: 20171207
  Transmission Date: 20180321
  Serious: Yes (Life-Threatening, Hospitalization, Other)
  Sender: FDA-Public Use
  Company Number: CA-ABBVIE-17S-028-2158286-00

PATIENT
  Age: 60 Year
  Sex: Male
  Weight: 72 kg

DRUGS (1)
  1. LUPRON DEPOT [Suspect]
     Active Substance: LEUPROLIDE ACETATE
     Indication: PROSTATE CANCER
     Route: 030
     Dates: start: 20151103

REACTIONS (6)
  - Weight increased [Recovering/Resolving]
  - Hot flush [Recovering/Resolving]
  - Fatigue [Recovering/Resolving]
  - Rectal haemorrhage [Unknown]
  - Deep vein thrombosis [Unknown]
  - Haemorrhoidal haemorrhage [Unknown]

NARRATIVE: CASE EVENT DATE: 201606
